FAERS Safety Report 5068399-3 (Version None)
Quarter: 2006Q3

REPORT INFORMATION
  Report Type: 
  Country: None (occurrence: None)
  Receive Date: 20060802
  Receipt Date: 20050909
  Transmission Date: 20061208
  Serious: Yes (Other)
  Sender: FDA-Public Use
  Company Number: US-BRISTOL-MYERS SQUIBB COMPANY-13106042

PATIENT

DRUGS (2)
  1. COUMADIN [Suspect]
     Dosage: THERAPY WAS HELD FOR A 4-5 DAY PERIOD.
  2. PROCRIT [Suspect]
     Indication: ANAEMIA
     Route: 051
     Dates: start: 20050101

REACTIONS (1)
  - PROTHROMBIN TIME RATIO INCREASED [None]
